FAERS Safety Report 8025435-X (Version None)
Quarter: 2012Q1

REPORT INFORMATION
  Report Type: 
  Country: None (occurrence: None)
  Receive Date: 20120105
  Receipt Date: 20111227
  Transmission Date: 20120608
  Serious: Yes (Hospitalization, Other)
  Sender: FDA-Public Use
  Company Number: US-ELI_LILLY_AND_COMPANY-US201011006146

PATIENT
  Sex: Female
  Weight: 40.816 kg

DRUGS (17)
  1. VITAMIN E [Concomitant]
     Dosage: 400 U, TID
  2. ARANESP [Concomitant]
     Indication: HAEMOGLOBIN DECREASED
  3. VITAMIN B6 [Concomitant]
  4. FORTEO [Suspect]
     Dosage: 20 UG, DAILY (1/D)
  5. CALTRATE + D [Concomitant]
  6. SIMVASTATIN [Concomitant]
     Dosage: 40 MG, UNKNOWN
  7. FORTEO [Suspect]
     Dosage: 20 UG, DAILY (1/D)
  8. FORTEO [Suspect]
     Dosage: 20 UG, QD
  9. MEGACE [Concomitant]
  10. VITAMIN D [Concomitant]
  11. OMEPRAZOLE [Concomitant]
     Dosage: 20 MG, UNKNOWN
  12. FORTEO [Suspect]
     Dosage: 20 UG, QD
  13. AMLODIPINE [Concomitant]
     Dosage: 2.5 MG, QD
  14. FORTEO [Suspect]
     Indication: OSTEOPOROSIS
     Dosage: 20 UG, DAILY (1/D)
     Dates: start: 20100801
  15. FORTEO [Suspect]
     Dosage: 20 UG, DAILY (1/D)
  16. LISINOPRIL [Concomitant]
     Dosage: 10 MG, UNKNOWN
  17. FORTEO [Suspect]
     Dosage: 20 UG, DAILY (1/D)

REACTIONS (19)
  - OCULAR DISCOMFORT [None]
  - ANXIETY [None]
  - INSOMNIA [None]
  - RASH [None]
  - PRURITUS [None]
  - JOINT INJURY [None]
  - MALABSORPTION [None]
  - FATIGUE [None]
  - OEDEMA PERIPHERAL [None]
  - FALL [None]
  - TOOTH DISORDER [None]
  - ARTHRITIS [None]
  - SOMNOLENCE [None]
  - THROMBOSIS [None]
  - WART EXCISION [None]
  - ARTHRALGIA [None]
  - INJECTION SITE HAEMATOMA [None]
  - ANAEMIA [None]
  - BLOOD IRON DECREASED [None]
